FAERS Safety Report 4707190-1 (Version None)
Quarter: 2005Q3

REPORT INFORMATION
  Report Type: 
  Country: None (occurrence: None)
  Receive Date: 20050701
  Receipt Date: 20050614
  Transmission Date: 20060218
  Serious: Yes (Other)
  Sender: FDA-Public Use
  Company Number: 26853

PATIENT
  Age: 23 Year
  Sex: Female

DRUGS (1)
  1. ALDARA [Suspect]
     Indication: KELOID SCAR
     Dosage: 1 IN 1 DAYS
     Route: 061
     Dates: start: 20050302

REACTIONS (1)
  - WOUND DEHISCENCE [None]
